FAERS Safety Report 6216016-9 (Version None)
Quarter: 2009Q2

REPORT INFORMATION
  Report Type: 
  Country: None (occurrence: None)
  Receive Date: 20090605
  Receipt Date: 20090525
  Transmission Date: 20091009
  Serious: Yes (Hospitalization, Other)
  Sender: FDA-Public Use
  Company Number: PHHY2009AU05945

PATIENT
  Sex: Male

DRUGS (5)
  1. CLOZARIL [Suspect]
     Indication: SCHIZOPHRENIA
     Dosage: 500 MG, UNK
     Route: 048
     Dates: start: 19951030
  2. CLOZARIL [Suspect]
     Dosage: 400 MG, UNK
     Route: 048
  3. GENTAMYCIN SULFATE [Concomitant]
     Dosage: 180 MG, UNK
     Route: 042
     Dates: start: 20090213, end: 20090217
  4. AMOXICILLIN [Concomitant]
     Dosage: UNK
     Route: 042
     Dates: start: 20090213, end: 20090217
  5. PROPRANOLOL HYDROCHLORIDE [Concomitant]
     Dosage: UNK
     Dates: start: 20090217, end: 20090219

REACTIONS (4)
  - DRUG LEVEL INCREASED [None]
  - TACHYCARDIA [None]
  - URINARY TRACT INFECTION BACTERIAL [None]
  - UROSEPSIS [None]
